FAERS Safety Report 4894209-0 (Version None)
Quarter: 2006Q1

REPORT INFORMATION
  Report Type: 
  Country: None (occurrence: None)
  Receive Date: 20060127
  Receipt Date: 20051018
  Transmission Date: 20060701
  Serious: No
  Sender: FDA-Public Use
  Company Number: CHPA2005US03633

PATIENT
  Age: 30 Year
  Sex: Female
  Weight: 87.3 kg

DRUGS (4)
  1. WELLBUTRIN [Suspect]
     Indication: MENTAL DISORDER
     Dosage: 150MG PER DAY
     Route: 048
  2. EQUATE NICOTINE PATCH [Suspect]
     Dosage: 14MG PER DAY
     Route: 062
  3. CLONAZEPAM [Suspect]
     Indication: MENTAL DISORDER
     Dosage: 1MG PER DAY
     Route: 048
  4. DEPAKOTE [Suspect]
     Indication: MENTAL DISORDER
     Dosage: 1500MG PER DAY
     Route: 048

REACTIONS (4)
  - ASTHENIA [None]
  - MALAISE [None]
  - NERVOUSNESS [None]
  - VOMITING [None]
